APPROVED DRUG PRODUCT: DORZOLAMIDE HYDROCHLORIDE
Active Ingredient: DORZOLAMIDE HYDROCHLORIDE
Strength: EQ 2% BASE
Dosage Form/Route: SOLUTION/DROPS;OPHTHALMIC
Application: A205294 | Product #001 | TE Code: AT
Applicant: FDC LTD
Approved: Jan 24, 2019 | RLD: No | RS: No | Type: RX